FAERS Safety Report 8726756 (Version 2)
Quarter: 2012Q4

REPORT INFORMATION
  Report Type: 
  Country: BR (occurrence: BR)
  Receive Date: 20120816
  Receipt Date: 20121031
  Transmission Date: 20130627
  Serious: Yes (Hospitalization, Other)
  Sender: FDA-Public Use
  Company Number: PHHY2012BR070752

PATIENT
  Age: 69 Year
  Sex: Female

DRUGS (4)
  1. TEGRETOL [Suspect]
     Dosage: 200 mg, daily
     Dates: start: 20120711
  2. TEGRETOL [Suspect]
     Dosage: 800 mg, daily
  3. GARDENAL [Suspect]
     Dosage: 50mg in the morning, and 100 mg at night
     Dates: start: 20120711
  4. GARDENAL [Suspect]
     Dosage: 50mg in the morning and 50 mg in the evening

REACTIONS (4)
  - Convulsion [Recovered/Resolved]
  - Blood sodium decreased [Recovered/Resolved]
  - Disorientation [Recovered/Resolved]
  - Dizziness [Recovered/Resolved]
